FAERS Safety Report 19919354 (Version 4)
Quarter: 2023Q4

REPORT INFORMATION
  Report Type: Report from Study
  Country: CN (occurrence: CN)
  Receive Date: 20211004
  Receipt Date: 20231207
  Transmission Date: 20240110
  Serious: Yes (Hospitalization, Other)
  Sender: FDA-Public Use
  Company Number: CN-BAXTER-2020BAX023248

PATIENT
  Age: 63 Year
  Sex: Female
  Weight: 60 kg

DRUGS (26)
  1. CYCLOPHOSPHAMIDE [Suspect]
     Active Substance: CYCLOPHOSPHAMIDE
     Indication: Triple negative breast cancer
     Dosage: DATE OF LAST DOSE PRIOR TO ADVERSE EVENT 04/APR/2020, 978 MG (600 MG/M2,1 IN 2 WK)
     Route: 042
     Dates: start: 20200106
  2. CYCLOPHOSPHAMIDE [Suspect]
     Active Substance: CYCLOPHOSPHAMIDE
     Dosage: DATE OF LAST DOSE PRIOR TO ADVERSE EVENT 04/APR/2020, 978 MG (978 MG,1 IN 2 WK)
     Route: 042
     Dates: start: 20200106
  3. ATEZOLIZUMAB [Suspect]
     Active Substance: ATEZOLIZUMAB
     Indication: Triple negative breast cancer
     Dosage: DATE OF LAST DOSE (840 MG) PRIOR TO ADVERSE EVENT 04/APR/2020 (840 MG,1 IN 2 WK)
     Route: 041
     Dates: start: 20191012
  4. EPIRUBICIN HYDROCHLORIDE [Suspect]
     Active Substance: EPIRUBICIN HYDROCHLORIDE
     Indication: Triple negative breast cancer
     Dosage: MOST RECENT DOSE IF EPIRUBICIN: 04/APR/2020, 146.7 MG (90 MG/M2,1 IN 2 WK)
     Route: 042
     Dates: start: 20200106
  5. EPIRUBICIN HYDROCHLORIDE [Suspect]
     Active Substance: EPIRUBICIN HYDROCHLORIDE
     Dosage: MOST RECENT DOSE IF EPIRUBICIN: 04/APR/2020, 146.7 MG (146.7 MG,1 IN 2 WK)
     Route: 042
     Dates: start: 20200106
  6. PACLITAXEL [Suspect]
     Active Substance: PACLITAXEL
     Indication: Triple negative breast cancer
     Dosage: MOST RECENT DOSE OF PACLITAXEL PRIOR TO AE ONSET: 28/DEC/2019 (130.4 MG). (80 MG/M2,1 IN 1 WK)
     Route: 042
     Dates: start: 20191012
  7. PACLITAXEL [Suspect]
     Active Substance: PACLITAXEL
     Dosage: MOST RECENT DOSE OF PACLITAXEL PRIOR TO AE ONSET: 28/DEC/2019 (130.4 MG). (130.4 MG,1 IN 1 WK)
     Route: 065
     Dates: start: 20191228
  8. FILGRASTIM [Suspect]
     Active Substance: FILGRASTIM
     Indication: Triple negative breast cancer
     Dosage: START AND END TIME UNKNOWN. (300 ?G,1 IN 2 WK)
     Route: 058
     Dates: start: 20200113, end: 20200113
  9. FILGRASTIM [Suspect]
     Active Substance: FILGRASTIM
     Dosage: START TIME 15:46 END TIME 07:00 (300 ?G,1 IN 2 WK)
     Route: 058
     Dates: start: 20200119, end: 20200120
  10. FILGRASTIM [Suspect]
     Active Substance: FILGRASTIM
     Dosage: START TIME 11:30, END TIME 10:44 (300 ?G,1 IN 2 WK)
     Route: 058
     Dates: start: 20200403, end: 20200406
  11. LEVOFLOXACIN LACTATE [Concomitant]
     Active Substance: LEVOFLOXACIN LACTATE
     Dosage: UNK, LEVOFLOXACIN LACTATE;SODIUM CHLORIDE
     Route: 065
     Dates: start: 20200427, end: 20200508
  12. CLINDAMYCIN HYDROCHLORIDE [Concomitant]
     Active Substance: CLINDAMYCIN HYDROCHLORIDE
     Dosage: UNK
     Route: 065
     Dates: start: 20200427, end: 20200508
  13. SODIUM CHLORIDE [Concomitant]
     Active Substance: SODIUM CHLORIDE
     Dosage: UNK
     Route: 042
     Dates: start: 20200411, end: 20200414
  14. DICLOFENAC SODIUM [Concomitant]
     Active Substance: DICLOFENAC\DICLOFENAC SODIUM
     Dosage: 50 MG
     Route: 065
     Dates: start: 20200412, end: 20200414
  15. CEPHRADINE [Concomitant]
     Active Substance: CEPHRADINE
     Dosage: 6 G
     Route: 065
     Dates: start: 20200411
  16. PANTOPRAZOLE SODIUM [Concomitant]
     Active Substance: PANTOPRAZOLE SODIUM
     Dosage: 40 MG
     Route: 065
     Dates: start: 20200411, end: 20200423
  17. CILASTATIN SODIUM\IMIPENEM [Concomitant]
     Active Substance: CILASTATIN SODIUM\IMIPENEM
     Dosage: UNK
     Route: 065
     Dates: start: 20200412, end: 20200423
  18. GRANULOCYTE COLONY-STIMULATING FACTOR NOS [Concomitant]
     Active Substance: GRANULOCYTE COLONY-STIMULATING FACTOR NOS
     Dosage: UNK
     Route: 065
     Dates: start: 20200411, end: 20200411
  19. GRANULOCYTE COLONY-STIMULATING FACTOR NOS [Concomitant]
     Active Substance: GRANULOCYTE COLONY-STIMULATING FACTOR NOS
     Dosage: UNK
     Route: 065
     Dates: start: 20200412, end: 20200418
  20. THROMBOPOIETIN [Concomitant]
     Active Substance: THROMBOPOIETIN
     Dosage: UNK
     Route: 065
     Dates: start: 20200415, end: 20200422
  21. MONTMORILLONITE [Concomitant]
     Active Substance: MONTMORILLONITE
     Dosage: UNK, POWDER
     Route: 065
     Dates: start: 20200412, end: 20200412
  22. DEXAMETHASONE [Concomitant]
     Active Substance: DEXAMETHASONE
     Dosage: UNK
     Route: 065
     Dates: start: 20200412, end: 20200412
  23. ERYTHROPOIETIN [Concomitant]
     Active Substance: ERYTHROPOIETIN
     Dosage: UNK
     Route: 065
     Dates: start: 20230417, end: 20230420
  24. PROMETHAZINE HYDROCHLORIDE [Concomitant]
     Active Substance: PROMETHAZINE HYDROCHLORIDE
     Dosage: UNK
     Route: 065
     Dates: start: 20200415, end: 20200415
  25. FUSIDIC ACID [Concomitant]
     Active Substance: FUSIDIC ACID
     Dosage: UNK
     Route: 065
     Dates: start: 20200417, end: 20200417
  26. ALPRAZOLAM [Concomitant]
     Active Substance: ALPRAZOLAM
     Dosage: UNK
     Route: 065
     Dates: start: 20200419

REACTIONS (2)
  - Anal abscess [Recovered/Resolved with Sequelae]
  - Febrile neutropenia [Recovered/Resolved]

NARRATIVE: CASE EVENT DATE: 20200410
